FAERS Safety Report 7642897-8 (Version None)
Quarter: 2011Q3

REPORT INFORMATION
  Report Type: 
  Country: None (occurrence: None)
  Receive Date: 20110728
  Receipt Date: 20110718
  Transmission Date: 20111222
  Serious: Yes (Hospitalization, Other)
  Sender: FDA-Public Use
  Company Number: PHEH2007US11263

PATIENT
  Sex: Female
  Weight: 54 kg

DRUGS (47)
  1. ASPIRIN [Concomitant]
  2. SULFAMETHOXAZOLE [Concomitant]
  3. CYTOXAN [Concomitant]
  4. TYLENOL-500 [Concomitant]
  5. AMITRIPTYLINE HCL [Concomitant]
  6. CITALOPRAM HYDROBROMIDE [Concomitant]
  7. TRAMADOL HCL [Concomitant]
  8. AMBIEN [Concomitant]
  9. PENICILLIN ^GRUNENTHAL^ [Concomitant]
  10. FERROUS SULFATE TAB [Concomitant]
  11. COMPAZINE [Concomitant]
  12. AREDIA [Suspect]
     Dosage: 90 MG,
     Route: 042
     Dates: start: 19961101, end: 20050101
  13. PROZAC [Concomitant]
  14. GABAPENTIN [Concomitant]
  15. VALIUM [Concomitant]
  16. CELEXA [Concomitant]
  17. HEPARIN [Concomitant]
  18. ONDANSETRON [Concomitant]
  19. ZOMETA [Suspect]
     Dosage: 4 MG, QMO
     Route: 042
     Dates: start: 20030601, end: 20051101
  20. TAMOXIFEN CITRATE [Concomitant]
  21. VERSED [Concomitant]
  22. ANCEF [Concomitant]
  23. SUMATRIPTAN SUCCINATE [Concomitant]
  24. CALCIUM ACETATE [Concomitant]
  25. PAMIDRONATE DISODIUM [Concomitant]
  26. ISOVUE-128 [Concomitant]
  27. BOLUS [Concomitant]
  28. ENOXAPARIN [Concomitant]
  29. COUMADIN [Concomitant]
  30. FOSAMAX [Suspect]
     Dates: start: 19950101
  31. IMITREX ^CERENEX^ [Concomitant]
  32. FLUOXETINE [Concomitant]
  33. ADRIAMYCIN PFS [Concomitant]
  34. BACITRACIN [Concomitant]
  35. PANTOPRAZOLE SODIUM [Concomitant]
  36. NEURONTIN [Concomitant]
  37. DIFLUCAN [Concomitant]
  38. ACETAMINOPHEN AND HYDROCODONE BITARTRATE [Concomitant]
  39. FLUMAZENIL [Concomitant]
  40. IBUPROFEN [Concomitant]
  41. MULTIPLE VITAMINS [Concomitant]
  42. HYDROCODONE BITARTRATE AND ACETAMINOPHEN [Concomitant]
  43. LORTAB [Concomitant]
  44. VITAMIN B [Concomitant]
  45. ERYTHROMYCIN [Concomitant]
  46. REQUIP [Concomitant]
  47. ANACIN [Concomitant]

REACTIONS (56)
  - DENTAL CARIES [None]
  - APPENDICITIS [None]
  - SQUAMOUS CELL CARCINOMA OF SKIN [None]
  - MICTURITION URGENCY [None]
  - KLEBSIELLA INFECTION [None]
  - DEEP VEIN THROMBOSIS [None]
  - PAIN [None]
  - METASTASES TO BONE [None]
  - EROSIVE OESOPHAGITIS [None]
  - OEDEMA PERIPHERAL [None]
  - INJURY [None]
  - INFECTION [None]
  - WOUND SECRETION [None]
  - ACTINIC KERATOSIS [None]
  - SPINAL OSTEOARTHRITIS [None]
  - RESTLESS LEGS SYNDROME [None]
  - DYSURIA [None]
  - INTRACRANIAL PRESSURE INCREASED [None]
  - LOOSE TOOTH [None]
  - TOOTH DISORDER [None]
  - PYELONEPHRITIS [None]
  - WEIGHT DECREASED [None]
  - POST-TRAUMATIC HEADACHE [None]
  - HYPERTENSION [None]
  - TENSION HEADACHE [None]
  - POLLAKIURIA [None]
  - URINE ANALYSIS ABNORMAL [None]
  - HEAD INJURY [None]
  - CEREBRAL INFARCTION [None]
  - SWELLING [None]
  - GASTRITIS [None]
  - DUODENAL STENOSIS [None]
  - FLANK PAIN [None]
  - STATUS MIGRAINOSUS [None]
  - CEREBRAL CALCIFICATION [None]
  - HYPOAESTHESIA [None]
  - URINARY TRACT INFECTION [None]
  - SUBDURAL HAEMATOMA [None]
  - EMOTIONAL DISTRESS [None]
  - BONE DISORDER [None]
  - TOOTH ABSCESS [None]
  - HERNIA [None]
  - GASTRIC ULCER [None]
  - LUNG NEOPLASM [None]
  - NAUSEA [None]
  - PHOTOPHOBIA [None]
  - DEPRESSION [None]
  - IMPAIRED HEALING [None]
  - DYSPHAGIA [None]
  - DECREASED APPETITE [None]
  - ANAEMIA [None]
  - OSTEONECROSIS OF JAW [None]
  - TOOTHACHE [None]
  - CARPAL TUNNEL SYNDROME [None]
  - HIATUS HERNIA [None]
  - SCOLIOSIS [None]
